FAERS Safety Report 14779684 (Version 1)
Quarter: 2018Q2

REPORT INFORMATION
  Report Type: Report from Study
  Country: GB (occurrence: GB)
  Receive Date: 20180419
  Receipt Date: 20180419
  Transmission Date: 20180711
  Serious: Yes (Hospitalization)
  Sender: FDA-Public Use
  Company Number: PHHY2018GB044368

PATIENT
  Sex: Male

DRUGS (2)
  1. THYMINE [Concomitant]
     Active Substance: THYMINE
     Indication: PRODUCT USED FOR UNKNOWN INDICATION
     Dosage: UNK
     Route: 065
  2. COSENTYX [Suspect]
     Active Substance: SECUKINUMAB
     Indication: PSORIASIS
     Dosage: 300 MG, QMO
     Route: 058
     Dates: start: 20170713

REACTIONS (3)
  - Concomitant disease aggravated [Unknown]
  - Pain in extremity [Unknown]
  - Insomnia [Unknown]
